FAERS Safety Report 4484401-1 (Version None)
Quarter: 2004Q3

REPORT INFORMATION
  Report Type: 
  Country: None (occurrence: None)
  Receive Date: 20040921
  Receipt Date: 20040409
  Transmission Date: 20050211
  Serious: Yes (Death, Hospitalization)
  Sender: FDA-Public Use
  Company Number: 163-20785-04040316

PATIENT
  Age: 61 Year
  Sex: Female
  Weight: 95.9 kg

DRUGS (2)
  1. THALOMID [Suspect]
     Indication: BREAST CANCER METASTATIC
     Dosage: 400-1000MG, DAILY, ORAL
     Route: 048
     Dates: start: 20040223, end: 20040328
  2. RADIATION [Suspect]
     Indication: BREAST CANCER METASTATIC
     Dosage: 2.5GY, QD DAYS 1-5 Q WEEK FOR 3 WEEKS
     Dates: start: 20040223, end: 20040328

REACTIONS (4)
  - DEATH [None]
  - DISEASE PROGRESSION [None]
  - PERIPHERAL MOTOR NEUROPATHY [None]
  - RASH [None]
